FAERS Safety Report 19406206 (Version 1)
Quarter: 2021Q2

REPORT INFORMATION
  Report Type: Spontaneous
  Country: DE (occurrence: DE)
  Receive Date: 20210611
  Receipt Date: 20210611
  Transmission Date: 20210717
  Serious: Yes (Hospitalization)
  Sender: FDA-Public Use
  Company Number: DE-TEVA-2021-DE-1919904

PATIENT
  Age: 82 Year
  Sex: Female

DRUGS (5)
  1. APIXABAN [Concomitant]
     Active Substance: APIXABAN
     Dosage: 10 MILLIGRAM DAILY; 1?0?1?0
     Route: 048
  2. AMLODIPIN/OLMESARTAN [Concomitant]
     Dosage: 1 DOSAGE FORMS DAILY; 10|40 MG, 1?0?0?0
     Route: 048
  3. BISOPROLOL [Suspect]
     Active Substance: BISOPROLOL
     Route: 048
  4. TORASEMID [Concomitant]
     Active Substance: TORSEMIDE
     Dosage: 10 MILLIGRAM DAILY;  1?0?0?0
     Route: 048
  5. LEVOTHYROXIN?NATRIUM [Concomitant]
     Active Substance: LEVOTHYROXINE SODIUM
     Dosage: 1 DOSAGE FORMS DAILY; 0.125 MG, 1?0?0?0
     Route: 048

REACTIONS (5)
  - Bradycardia [Recovering/Resolving]
  - Atrial fibrillation [Recovering/Resolving]
  - Medication error [Unknown]
  - Syncope [Recovering/Resolving]
  - Dizziness [Recovering/Resolving]
